FAERS Safety Report 4360123-2 (Version None)
Quarter: 2004Q2

REPORT INFORMATION
  Report Type: 
  Country: None (occurrence: None)
  Receive Date: 20040514
  Receipt Date: 20040429
  Transmission Date: 20050107
  Serious: Yes (Hospitalization, Other)
  Sender: FDA-Public Use
  Company Number: 8006044

PATIENT
  Age: 32 Year
  Sex: Female

DRUGS (4)
  1. KEPPRA [Suspect]
     Indication: PARTIAL SEIZURES WITH SECONDARY GENERALISATION
     Dosage: 250 MG PC
     Dates: start: 20030101, end: 20030101
  2. KEPPRA [Suspect]
     Indication: PARTIAL SEIZURES WITH SECONDARY GENERALISATION
     Dosage: 500 MG PC
     Dates: start: 20030101, end: 20030101
  3. KEPPRA [Suspect]
     Indication: PARTIAL SEIZURES WITH SECONDARY GENERALISATION
     Dosage: 500 MG PO
     Route: 048
     Dates: start: 20031001
  4. LAMOTRIGINE [Concomitant]

REACTIONS (13)
  - BODY TEMPERATURE INCREASED [None]
  - DRUG HYPERSENSITIVITY [None]
  - EYELID OEDEMA [None]
  - HETEROPLASIA [None]
  - HYPOGAMMAGLOBULINAEMIA [None]
  - IMMUNODEFICIENCY COMMON VARIABLE [None]
  - IRON DEFICIENCY ANAEMIA [None]
  - LEUKOPENIA [None]
  - PNEUMONIA PNEUMOCOCCAL [None]
  - PRURITUS GENERALISED [None]
  - SIMPLE PARTIAL SEIZURES [None]
  - TREATMENT NONCOMPLIANCE [None]
  - TREMOR [None]
